FAERS Safety Report 16838895 (Version 2)
Quarter: 2019Q4

REPORT INFORMATION
  Report Type: Spontaneous
  Country: SA (occurrence: SA)
  Receive Date: 20190923
  Receipt Date: 20191004
  Transmission Date: 20200122
  Serious: Yes (Hospitalization, Other)
  Sender: FDA-Public Use
  Company Number: SA-SA-2019SA260425

PATIENT
  Age: 31 Year
  Sex: Male

DRUGS (11)
  1. SULFAMETHOXAZOLE/TRIMETHOPRIM [Suspect]
     Active Substance: SULFAMETHOXAZOLE\TRIMETHOPRIM
     Dosage: UNK
     Route: 042
  2. SULFAMETHOXAZOLE/TRIMETHOPRIM [Suspect]
     Active Substance: SULFAMETHOXAZOLE\TRIMETHOPRIM
     Dosage: DOUBLE STRENGTH, Q12H
     Route: 048
  3. RIFAMPICIN [Suspect]
     Active Substance: RIFAMPIN
     Dosage: REINTRODUCED
     Route: 048
  4. CIPROFLOXACIN. [Concomitant]
     Active Substance: CIPROFLOXACIN
     Indication: BRUCELLOSIS
     Dosage: 400 MG, Q8H
     Route: 042
  5. RIFAMPICIN [Suspect]
     Active Substance: RIFAMPIN
     Indication: BRUCELLOSIS
     Dosage: 900 MG, QD
     Route: 048
  6. SULFAMETHOXAZOLE/TRIMETHOPRIM [Suspect]
     Active Substance: SULFAMETHOXAZOLE\TRIMETHOPRIM
     Indication: BRUCELLOSIS
     Dosage: DOUBLE STRENGTH
     Route: 048
  7. CEFTRIAXONE SODIUM. [Suspect]
     Active Substance: CEFTRIAXONE SODIUM
     Indication: BRUCELLOSIS
     Dosage: 2 G, Q12H
     Route: 042
  8. DOXYCYCLINE. [Concomitant]
     Active Substance: DOXYCYCLINE
     Indication: BRUCELLOSIS
     Dosage: 100 MG, Q12H
     Route: 048
  9. CIPROFLOXACIN. [Concomitant]
     Active Substance: CIPROFLOXACIN
     Dosage: 750 MG, Q12H
     Route: 048
  10. AMIKACIN SULFATE. [Suspect]
     Active Substance: AMIKACIN SULFATE
     Indication: BRUCELLOSIS
     Dosage: 720 MG, Q12H (7.5 MG/KG)
     Route: 042
  11. ACETAMINOPHEN. [Concomitant]
     Active Substance: ACETAMINOPHEN
     Indication: PYREXIA

REACTIONS (10)
  - Erythema [Recovered/Resolved]
  - Pyrexia [Recovered/Resolved]
  - Vomiting [Unknown]
  - Rash [Recovered/Resolved]
  - Ototoxicity [Unknown]
  - Swelling [Recovered/Resolved]
  - Hypersensitivity [Recovered/Resolved]
  - Dyspnoea [Recovered/Resolved]
  - Hypoacusis [Unknown]
  - Hepatic enzyme increased [Unknown]
